FAERS Safety Report 10864873 (Version 2)
Quarter: 2015Q3

REPORT INFORMATION
  Report Type: Report from Study
  Country: JP (occurrence: JP)
  Receive Date: 20150224
  Receipt Date: 20150914
  Transmission Date: 20151125
  Serious: No
  Sender: FDA-Public Use
  Company Number: JP-009507513-1502JPN010203

PATIENT
  Age: 83 Year
  Sex: Male

DRUGS (7)
  1. DIAZOXIDE [Suspect]
     Active Substance: DIAZOXIDE
     Dosage: 100 MG, BID
     Route: 048
     Dates: start: 20150227, end: 20150302
  2. DIAZOXIDE [Suspect]
     Active Substance: DIAZOXIDE
     Dosage: 200 MG, UNK
     Route: 048
     Dates: start: 20150216, end: 20150217
  3. DIAZOXIDE [Suspect]
     Active Substance: DIAZOXIDE
     Indication: HYPOGLYCAEMIA
     Dosage: 50 MG, TID
     Route: 048
     Dates: start: 20150213, end: 20150215
  4. DIAZOXIDE [Suspect]
     Active Substance: DIAZOXIDE
     Dosage: 100 MG, BID
     Route: 048
     Dates: start: 20150218, end: 20150223
  5. DIAZOXIDE [Suspect]
     Active Substance: DIAZOXIDE
     Dosage: 75 MG, BID
     Route: 048
     Dates: start: 20150303, end: 20150310
  6. DIAZOXIDE [Suspect]
     Active Substance: DIAZOXIDE
     Dosage: 125 MG, BID
     Route: 048
     Dates: start: 20150224, end: 20150226
  7. DIAZOXIDE [Suspect]
     Active Substance: DIAZOXIDE
     Dosage: 50 MG, BID
     Route: 048
     Dates: start: 20150311

REACTIONS (2)
  - Aspartate aminotransferase increased [Not Recovered/Not Resolved]
  - Alanine aminotransferase increased [Not Recovered/Not Resolved]

NARRATIVE: CASE EVENT DATE: 20150218
